FAERS Safety Report 9760325 (Version 3)
Quarter: 2015Q3

REPORT INFORMATION
  Report Type: Spontaneous
  Country: US (occurrence: US)
  Receive Date: 20131216
  Receipt Date: 20150806
  Transmission Date: 20151125
  Serious: No
  Sender: FDA-Public Use
  Company Number: US-GILEAD-2010-0028985

PATIENT
  Age: 74 Year
  Sex: Female

DRUGS (12)
  1. SYNTHROID [Concomitant]
     Active Substance: LEVOTHYROXINE SODIUM
  2. ARICEPT [Concomitant]
     Active Substance: DONEPEZIL HYDROCHLORIDE
  3. VERAPAMIL [Concomitant]
     Active Substance: VERAPAMIL HYDROCHLORIDE
  4. LETAIRIS [Suspect]
     Active Substance: AMBRISENTAN
     Indication: PULMONARY ARTERIAL HYPERTENSION
     Route: 048
     Dates: start: 20100412, end: 20100417
  5. LASIX [Concomitant]
     Active Substance: FUROSEMIDE
  6. ZYRTEC [Concomitant]
     Active Substance: CETIRIZINE HYDROCHLORIDE
  7. ASPIRIN. [Concomitant]
     Active Substance: ASPIRIN
  8. CALCIUM + D [Concomitant]
     Active Substance: CALCIUM\VITAMIN D
  9. SPIRONOLACT [Concomitant]
  10. NEXIUM [Concomitant]
     Active Substance: ESOMEPRAZOLE MAGNESIUM
  11. CENTRUM [Concomitant]
     Active Substance: VITAMINS
  12. AMIODARONE [Concomitant]
     Active Substance: AMIODARONE

REACTIONS (3)
  - Lacrimation increased [Unknown]
  - Oropharyngeal pain [Unknown]
  - Swelling [Unknown]
